FAERS Safety Report 6835295-8 (Version None)
Quarter: 2010Q3

REPORT INFORMATION
  Report Type: 
  Country: None (occurrence: None)
  Receive Date: 20100713
  Receipt Date: 20100703
  Transmission Date: 20110219
  Serious: Yes (Hospitalization)
  Sender: FDA-Public Use
  Company Number: US-JNJFOC-20100702364

PATIENT
  Age: 14 Year
  Sex: Female

DRUGS (4)
  1. RISPERIDONE [Suspect]
     Indication: PRODUCT USED FOR UNKNOWN INDICATION
     Dosage: 15 TABLETS OF RISPERIDONE
     Route: 065
  2. RISPERIDONE [Suspect]
     Route: 065
  3. WELLBUTRIN XL [Suspect]
     Indication: PRODUCT USED FOR UNKNOWN INDICATION
     Dosage: 18 TABLETS OF WELLBURTIN
     Route: 065
  4. WELLBUTRIN XL [Suspect]
     Route: 065

REACTIONS (7)
  - CONVULSION [None]
  - DISORIENTATION [None]
  - DYSARTHRIA [None]
  - HEART RATE INCREASED [None]
  - NAUSEA [None]
  - OVERDOSE [None]
  - SOMNOLENCE [None]
